FAERS Safety Report 6582231-8 (Version None)
Quarter: 2010Q1

REPORT INFORMATION
  Report Type: 
  Country: None (occurrence: None)
  Receive Date: 20100203
  Receipt Date: 20100127
  Transmission Date: 20100710
  Serious: Yes (Hospitalization, Other)
  Sender: FDA-Public Use
  Company Number: 2009BM000334

PATIENT
  Age: 8 Year
  Sex: Female
  Weight: 20 kg

DRUGS (4)
  1. NAGLAZYME [Suspect]
     Indication: MUCOPOLYSACCHARIDOSIS VI
     Dosage: 28 MG; QW; IVDRP
     Route: 041
     Dates: start: 20090409
  2. ANTIHISTAMINES [Concomitant]
  3. ANTI INFLAMMATORY AGENTS, NON-STEROIDS [Concomitant]
  4. PULMICORT [Concomitant]

REACTIONS (5)
  - CEREBRAL VENTRICLE DILATATION [None]
  - FEEDING TUBE COMPLICATION [None]
  - HEADACHE [None]
  - VIRAL INFECTION [None]
  - VOMITING [None]
